FAERS Safety Report 10559011 (Version 4)
Quarter: 2014Q4

REPORT INFORMATION
  Report Type: Report from Study
  Country: FR (occurrence: FR)
  Receive Date: 20141103
  Receipt Date: 20141215
  Transmission Date: 20150529
  Serious: Yes (Hospitalization, Other)
  Sender: FDA-Public Use
  Company Number: FR-ROCHE-1192516

PATIENT
  Age: 70 Year
  Sex: Female
  Weight: 70 kg

DRUGS (13)
  1. PEGINTERFERON ALFA-2A [Suspect]
     Active Substance: PEGINTERFERON ALFA-2A
     Indication: HEPATITIS C
     Route: 058
     Dates: start: 20121024
  2. RIBAVIRIN. [Suspect]
     Active Substance: RIBAVIRIN
     Route: 048
     Dates: start: 20121125
  3. RIBAVIRIN. [Suspect]
     Active Substance: RIBAVIRIN
     Route: 048
     Dates: start: 20121220
  4. RIBAVIRIN. [Suspect]
     Active Substance: RIBAVIRIN
     Route: 048
     Dates: start: 20130213
  5. RIBAVIRIN. [Suspect]
     Active Substance: RIBAVIRIN
     Route: 048
     Dates: start: 20130227, end: 20130924
  6. ALDACTAZINE [Concomitant]
     Active Substance: ALTHIAZIDE\SPIRONOLACTONE
     Route: 048
     Dates: start: 20120223
  7. RIBAVIRIN. [Suspect]
     Active Substance: RIBAVIRIN
     Indication: HEPATITIS C
     Route: 048
     Dates: start: 20121024
  8. PEGINTERFERON ALFA-2A [Suspect]
     Active Substance: PEGINTERFERON ALFA-2A
     Route: 058
     Dates: start: 20121125, end: 20130924
  9. RIBAVIRIN. [Suspect]
     Active Substance: RIBAVIRIN
     Route: 048
     Dates: start: 20121120
  10. TELAPREVIR [Suspect]
     Active Substance: TELAPREVIR
     Indication: HEPATITIS C
     Route: 048
     Dates: start: 20121024, end: 20130109
  11. RIBAVIRIN. [Suspect]
     Active Substance: RIBAVIRIN
     Route: 048
     Dates: start: 20130130
  12. LYRICA [Concomitant]
     Active Substance: PREGABALIN
     Indication: HERPES ZOSTER
     Route: 048
     Dates: start: 20120223
  13. LEVOTHYROX [Concomitant]
     Active Substance: LEVOTHYROXINE
     Indication: HYPOTHYROIDISM
     Route: 048
     Dates: start: 20120223

REACTIONS (2)
  - Anaemia [Recovering/Resolving]
  - Pancytopenia [Recovering/Resolving]

NARRATIVE: CASE EVENT DATE: 20121107
